FAERS Safety Report 6140487-X (Version None)
Quarter: 2009Q1

REPORT INFORMATION
  Report Type: 
  Country: None (occurrence: None)
  Receive Date: 20090331
  Receipt Date: 20090324
  Transmission Date: 20090719
  Serious: Yes (Other)
  Sender: FDA-Public Use
  Company Number: SPV1-2009-00255

PATIENT
  Age: 5 Year
  Sex: Male
  Weight: 9.3 kg

DRUGS (1)
  1. DAYTRANA [Suspect]
     Indication: ATTENTION DEFICIT/HYPERACTIVITY DISORDER
     Dosage: 20 MG, 1X/DAY:QD, TRANSDERMAL
     Route: 062
     Dates: start: 20090216, end: 20090201

REACTIONS (3)
  - APPLICATION SITE ERYTHEMA [None]
  - HYPERSENSITIVITY [None]
  - OFF LABEL USE [None]
